FAERS Safety Report 10770687 (Version 1)
Quarter: 2015Q1

REPORT INFORMATION
  Report Type: Spontaneous
  Country: US (occurrence: None)
  Receive Date: 20150206
  Receipt Date: 20150206
  Transmission Date: 20150721
  Serious: No
  Sender: FDA-Public Use
  Company Number: HYP201402-000011

PATIENT
  Age: 9 Year
  Sex: Female
  Weight: 32.21 kg

DRUGS (5)
  1. CYCLINEX [Concomitant]
  2. RAVICTI [Suspect]
     Active Substance: GLYCEROL PHENYLBUTYRATE
     Indication: UREA CYCLE ENZYME DEFICIENCY
     Route: 048
     Dates: start: 20131211
  3. LEVOCARNITINE. [Concomitant]
     Active Substance: LEVOCARNITINE
  4. L-CITRULLINE [Concomitant]
     Active Substance: CITRULLINE
  5. SODIUM BENZOATE [Concomitant]
     Active Substance: SODIUM BENZOATE

REACTIONS (2)
  - Abdominal pain upper [None]
  - Ammonia increased [None]

NARRATIVE: CASE EVENT DATE: 20131211
